FAERS Safety Report 7957484-1 (Version None)
Quarter: 2011Q4

REPORT INFORMATION
  Report Type: 
  Country: None (occurrence: None)
  Receive Date: 20111205
  Receipt Date: 20111122
  Transmission Date: 20120403
  Serious: Yes (Other)
  Sender: FDA-Public Use
  Company Number: US-GLAXOSMITHKLINE-A0888752A

PATIENT
  Age: 33 Year
  Sex: Female
  Weight: 129.1 kg

DRUGS (1)
  1. AVANDIA [Suspect]
     Indication: DIABETES MELLITUS
     Route: 048
     Dates: start: 20040601

REACTIONS (6)
  - SUPRAVENTRICULAR TACHYCARDIA [None]
  - CARDIOMEGALY [None]
  - PALPITATIONS [None]
  - CARDIAC FAILURE CONGESTIVE [None]
  - HEART RATE IRREGULAR [None]
  - ATRIAL TACHYCARDIA [None]
